FAERS Safety Report 8106775-2 (Version None)
Quarter: 2012Q1

REPORT INFORMATION
  Report Type: 
  Country: None (occurrence: None)
  Receive Date: 20120202
  Receipt Date: 20120123
  Transmission Date: 20120608
  Serious: Yes (Hospitalization)
  Sender: FDA-Public Use
  Company Number: US-JNJFOC-20120101684

PATIENT
  Sex: Female
  Weight: 62.4 kg

DRUGS (2)
  1. HUMIRA [Concomitant]
     Dates: start: 20110121
  2. REMICADE [Suspect]
     Indication: CROHN'S DISEASE
     Route: 042
     Dates: start: 20100702, end: 20101201

REACTIONS (1)
  - CROHN'S DISEASE [None]
